FAERS Safety Report 16307384 (Version 1)
Quarter: 2019Q2

REPORT INFORMATION
  Report Type: Spontaneous
  Country: FR (occurrence: FR)
  Receive Date: 20190514
  Receipt Date: 20190514
  Transmission Date: 20190711
  Serious: Yes (Other)
  Sender: FDA-Public Use
  Company Number: FR-SA-2019SA129110

PATIENT
  Age: 59 Year
  Sex: Male
  Weight: 73.5 kg

DRUGS (4)
  1. COLCHIMAX (COLCHICINE\OPIUM\TIEMONIUM METHYLSULFATE) [Interacting]
     Active Substance: COLCHICINE\OPIUM\TIEMONIUM METHYLSULFATE
     Indication: GOUT
     Dosage: UNKNOWN
     Route: 048
     Dates: start: 201804, end: 201904
  2. LEVOFLOXACIN. [Concomitant]
     Active Substance: LEVOFLOXACIN
     Indication: OSTEOMYELITIS
     Dosage: 1000 MG, QD
     Route: 048
     Dates: start: 20190319, end: 20190412
  3. RIFAMPICIN [Suspect]
     Active Substance: RIFAMPIN
     Indication: OSTEOMYELITIS
     Dosage: 900 MG, QD
     Route: 048
     Dates: start: 20190319, end: 20190412
  4. INNOHEP [Concomitant]
     Active Substance: TINZAPARIN SODIUM
     Indication: THROMBOSIS PROPHYLAXIS
     Dosage: 1 DF, QD
     Route: 058
     Dates: start: 201903, end: 20190411

REACTIONS (2)
  - Drug interaction [Recovered/Resolved]
  - Drug ineffective [Recovered/Resolved]

NARRATIVE: CASE EVENT DATE: 2019
